FAERS Safety Report 4614349-0 (Version None)
Quarter: 2005Q1

REPORT INFORMATION
  Report Type: 
  Country: None (occurrence: None)
  Receive Date: 20050315
  Receipt Date: 20050228
  Transmission Date: 20050727
  Serious: Yes (Other)
  Sender: FDA-Public Use
  Company Number: 2005BI004381

PATIENT
  Sex: Female

DRUGS (1)
  1. AVONEX [Suspect]
     Indication: MULTIPLE SCLEROSIS
     Dosage: 30 UG; QW; IM
     Route: 030
     Dates: start: 20010101, end: 20021201

REACTIONS (3)
  - LUNG ADENOCARCINOMA [None]
  - METASTASES TO CENTRAL NERVOUS SYSTEM [None]
  - SECONDARY PROGRESSIVE MULTIPLE SCLEROSIS [None]
